FAERS Safety Report 18966406 (Version 1)
Quarter: 2021Q1

REPORT INFORMATION
  Report Type: Other
  Country: US (occurrence: US)
  Receive Date: 20210303
  Receipt Date: 20210303
  Transmission Date: 20210420
  Serious: Yes (Life-Threatening, Hospitalization, Other)
  Sender: FDA-Public Use
  Company Number: US-DENTSPLY-2021SCDP000060

PATIENT
  Age: 37 Year
  Sex: Male

DRUGS (2)
  1. LIDOCAINE. [Suspect]
     Active Substance: LIDOCAINE
     Indication: BACK PAIN
     Dosage: 2 DOSAGE FORM TOTAL
     Route: 008
  2. TRIAMCINOLONE [Suspect]
     Active Substance: TRIAMCINOLONE
     Indication: BACK PAIN
     Dosage: 2 DOSAGE FORM TOTAL
     Route: 008

REACTIONS (6)
  - Seizure [Recovered/Resolved]
  - Cerebral venous thrombosis [None]
  - Intracranial hypotension [None]
  - Cerebral infarction [None]
  - Status epilepticus [Recovered/Resolved]
  - Cerebrovascular accident [None]
